FAERS Safety Report 10527580 (Version 1)
Quarter: 2014Q4

REPORT INFORMATION
  Report Type: Spontaneous
  Country: US (occurrence: None)
  Receive Date: 20141016
  Receipt Date: 20141016
  Transmission Date: 20150528
  Serious: Yes (Disabling)
  Sender: FDA-Public Use
  Company Number: None

PATIENT
  Age: 51 Year
  Sex: Male
  Weight: 117.94 kg

DRUGS (1)
  1. LEVAQUIN [Suspect]
     Active Substance: LEVOFLOXACIN
     Indication: SINUSITIS
     Dosage: 1 PILL, 7-28 DAYS MULTIPLE TIMES
     Route: 048

REACTIONS (10)
  - Muscular weakness [None]
  - Neuropathy peripheral [None]
  - Rash [None]
  - Sinusitis [None]
  - Genital discomfort [None]
  - Genital paraesthesia [None]
  - Limb discomfort [None]
  - Genital disorder male [None]
  - Back disorder [None]
  - Paraesthesia [None]

NARRATIVE: CASE EVENT DATE: 20120615
